FAERS Safety Report 7914183-X (Version None)
Quarter: 2011Q4

REPORT INFORMATION
  Report Type: 
  Country: None (occurrence: None)
  Receive Date: 20111115
  Receipt Date: 20111115
  Transmission Date: 20120403
  Serious: Yes (Other)
  Sender: FDA-Public Use
  Company Number: None

PATIENT
  Sex: Female

DRUGS (1)
  1. DIGOXIN [Suspect]
     Indication: CARDIAC FAILURE CONGESTIVE
     Dosage: 250
     Route: 048
     Dates: start: 20111013, end: 20111022

REACTIONS (3)
  - FLUSHING [None]
  - DRUG INEFFECTIVE [None]
  - HEART RATE INCREASED [None]
